FAERS Safety Report 20408829 (Version 1)
Quarter: 2022Q1

REPORT INFORMATION
  Report Type: Spontaneous
  Country: NL (occurrence: NL)
  Receive Date: 20220201
  Receipt Date: 20220201
  Transmission Date: 20220424
  Serious: Yes (Hospitalization, Other)
  Sender: FDA-Public Use
  Company Number: NL-AUROBINDO-AUR-APL-2017-46486

PATIENT
  Age: 62 Year
  Sex: Male

DRUGS (9)
  1. AMITRIPTYLINE [Interacting]
     Active Substance: AMITRIPTYLINE
     Indication: Metastases to bone
     Dosage: UNK
     Route: 062
  2. AMITRIPTYLINE [Interacting]
     Active Substance: AMITRIPTYLINE
     Indication: Pain
  3. FENTANYL TRANSDERMAL SYSTEM [Interacting]
     Active Substance: FENTANYL
     Indication: Metastases to bone
     Dosage: INCREASED TO 75 MCG/H
     Route: 062
  4. FENTANYL TRANSDERMAL SYSTEM [Interacting]
     Active Substance: FENTANYL
     Indication: Cancer pain
     Dosage: 75 MCG/HOUR, UNKNOWN FREQ. ()
     Route: 062
  5. FENTANYL TRANSDERMAL SYSTEM [Interacting]
     Active Substance: FENTANYL
     Indication: Pain
     Dosage: UNK UNK, UNKNOWN FREQ. ()
     Route: 062
  6. PREGABALIN [Interacting]
     Active Substance: PREGABALIN
     Indication: Pain
     Dosage: UNK
     Route: 062
  7. DEXAMETHASONE [Interacting]
     Active Substance: DEXAMETHASONE
     Indication: Metastases to bone
     Dosage: 16 MILLIGRAM, ONCE A DAY
     Route: 065
  8. DEXAMETHASONE [Interacting]
     Active Substance: DEXAMETHASONE
     Indication: Cancer pain
  9. ENZALUTAMIDE [Interacting]
     Active Substance: ENZALUTAMIDE
     Indication: Hormone-refractory prostate cancer
     Dosage: UNK
     Route: 065

REACTIONS (8)
  - Cervical vertebral fracture [Unknown]
  - Malignant neoplasm progression [Recovering/Resolving]
  - Pain [Recovering/Resolving]
  - Spinal cord compression [Recovering/Resolving]
  - Thoracic vertebral fracture [Unknown]
  - Drug ineffective [Unknown]
  - Drug interaction [Recovering/Resolving]
  - Labelled drug-drug interaction medication error [Recovered/Resolved]
